FAERS Safety Report 21516259 (Version 1)
Quarter: 2022Q4

REPORT INFORMATION
  Report Type: Report from Study
  Country: DE (occurrence: DE)
  Receive Date: 20221027
  Receipt Date: 20221027
  Transmission Date: 20230112
  Serious: Yes (Congenital Anomaly)
  Sender: FDA-Public Use
  Company Number: DE-TEVA-2022-DE-2819529

PATIENT
  Sex: Female

DRUGS (1)
  1. IBUPROFEN [Suspect]
     Active Substance: IBUPROFEN
     Indication: Migraine
     Dosage: 400-600 MG THRICE A WEEK
     Route: 064

REACTIONS (3)
  - Ductus arteriosus stenosis foetal [Recovered/Resolved]
  - Heart valve incompetence [Recovered/Resolved]
  - Foetal exposure during pregnancy [Unknown]
